FAERS Safety Report 11278760 (Version 1)
Quarter: 2015Q3

REPORT INFORMATION
  Report Type: Report from Study
  Country: US (occurrence: US)
  Receive Date: 20150717
  Receipt Date: 20150717
  Transmission Date: 20151125
  Serious: Yes (Other)
  Sender: FDA-Public Use
  Company Number: PHEH2015US013458

PATIENT
  Sex: Male

DRUGS (8)
  1. AMITRIPTYLINE HYDROCHLORIDE. [Concomitant]
     Active Substance: AMITRIPTYLINE HYDROCHLORIDE
     Indication: DEPRESSION
     Dosage: 25 MG, QD (ONCE DAILY)
     Route: 048
  2. HYDRALAZINE HYDROCHLORIDE. [Concomitant]
     Active Substance: HYDRALAZINE HYDROCHLORIDE
     Indication: HYPERTENSION
     Dosage: 100 MG, TID (THREE TIMES A DAY)
     Route: 048
  3. ATENOLOL HCL [Concomitant]
     Indication: HYPERTENSION
     Dosage: 10 MG, BID (TWICE A DAY)
     Route: 048
  4. FUROSEMIDE. [Concomitant]
     Active Substance: FUROSEMIDE
     Indication: SWELLING
     Dosage: 40 MG, QD (ONCE DAILY)
     Route: 048
  5. AFINITOR [Suspect]
     Active Substance: EVEROLIMUS
     Indication: RENAL CELL CARCINOMA
     Dosage: 5 MG, QD (ONCE DAILY)
     Route: 048
     Dates: start: 20150628, end: 20150709
  6. JANUVIA [Concomitant]
     Active Substance: SITAGLIPTIN PHOSPHATE
     Indication: DIABETES MELLITUS
     Dosage: 50 MG, QD (ONCE DAILY)
     Route: 048
  7. ASPIRIN. [Concomitant]
     Active Substance: ASPIRIN
     Indication: HYPERTENSION
     Dosage: 80 MG, QD (ONCE DAILY)
     Route: 048
  8. THIAZIDES [Concomitant]
     Active Substance: UNSPECIFIED INGREDIENT
     Indication: HYPERTENSION
     Dosage: 10 MG, QD (ONCE DAILY)
     Route: 048

REACTIONS (2)
  - Blood glucose increased [Unknown]
  - Renal impairment [Unknown]
